FAERS Safety Report 5215462-X (Version None)
Quarter: 2007Q1

REPORT INFORMATION
  Report Type: 
  Country: None (occurrence: None)
  Receive Date: 20070119
  Receipt Date: 20070119
  Transmission Date: 20070707
  Serious: Yes (Hospitalization)
  Sender: FDA-Public Use
  Company Number: None

PATIENT
  Age: 60 Year
  Sex: Male
  Weight: 82.1 kg

DRUGS (8)
  1. GEMFIBROZIL [Suspect]
     Indication: HYPERLIPIDAEMIA
     Dosage: 600MG BID PO
     Route: 048
     Dates: start: 20031128, end: 20061026
  2. FLUVASTATIN [Suspect]
     Indication: HYPERLIPIDAEMIA
     Dosage: 80MG DAILY PO
     Route: 048
     Dates: start: 20060911, end: 20061026
  3. LISINOPRIL [Concomitant]
  4. GEMFIBROZIL [Concomitant]
  5. FLUVASTATIN [Concomitant]
  6. METOPROLOL TARTRATE [Concomitant]
  7. FELODIPINE [Concomitant]
  8. NON-VA ASPIRIN [Concomitant]

REACTIONS (3)
  - HEPATOTOXICITY [None]
  - MUSCULAR WEAKNESS [None]
  - RENAL FAILURE [None]
